FAERS Safety Report 7791031-2 (Version None)
Quarter: 2011Q4

REPORT INFORMATION
  Report Type: 
  Country: None (occurrence: None)
  Receive Date: 20111003
  Receipt Date: 20110920
  Transmission Date: 20120403
  Serious: Yes (Other)
  Sender: FDA-Public Use
  Company Number: US-BIOGENIDEC-2011BI036079

PATIENT
  Sex: Female
  Weight: 1 kg

DRUGS (1)
  1. TYSABRI [Suspect]
     Indication: MATERNAL EXPOSURE DURING PREGNANCY
     Route: 064
     Dates: start: 20071126, end: 20110131

REACTIONS (1)
  - SMALL FOR DATES BABY [None]
